FAERS Safety Report 24009713 (Version 1)
Quarter: 2024Q2

REPORT INFORMATION
  Report Type: Spontaneous
  Country: US (occurrence: None)
  Receive Date: 20240624
  Receipt Date: 20240624
  Transmission Date: 20240716
  Serious: Yes (Death)
  Sender: FDA-Public Use
  Company Number: None

PATIENT
  Sex: Female

DRUGS (9)
  1. PIRFENIDONE [Suspect]
     Active Substance: PIRFENIDONE
     Indication: Product used for unknown indication
     Dosage: FREQ: TAKE 1 TABLET BY MOUTH THREE TIMES DAILY AT THE SAME TIMES EACH DAY
     Route: 048
     Dates: start: 20221213
  2. PANTOPRAZOLE [Concomitant]
     Active Substance: PANTOPRAZOLE
  3. ATORVASTATIN [Concomitant]
     Active Substance: ATORVASTATIN
  4. IPRATROPIUM/SOL ALBUTER [Concomitant]
  5. PREDNISONE [Concomitant]
     Active Substance: PREDNISONE
  6. VITAMIN D [Concomitant]
     Active Substance: VITAMIN D NOS
  7. HYDROXYCHLOROQUINE [Concomitant]
     Active Substance: HYDROXYCHLOROQUINE
  8. ASPIRIN [Concomitant]
     Active Substance: ASPIRIN
  9. CYPROHEPTAD [Concomitant]

REACTIONS (1)
  - Death [None]
